FAERS Safety Report 15335651 (Version 1)
Quarter: 2018Q3

REPORT INFORMATION
  Report Type: Spontaneous
  Country: US (occurrence: US)
  Receive Date: 20180827
  Receipt Date: 20180827
  Transmission Date: 20181010
  Serious: Yes (Life-Threatening)
  Sender: FDA-Public Use
  Company Number: None

PATIENT
  Age: 23 Year
  Sex: Female
  Weight: 63.5 kg

DRUGS (2)
  1. PARAGARD T 380A [Suspect]
     Active Substance: COPPER
     Dates: start: 20180509, end: 20180803
  2. FLUOXETINE [Concomitant]
     Active Substance: FLUOXETINE HYDROCHLORIDE

REACTIONS (16)
  - Dysmenorrhoea [None]
  - Menorrhagia [None]
  - Uterine pain [None]
  - Thyroid function test abnormal [None]
  - Device colour issue [None]
  - Depression [None]
  - Weight increased [None]
  - Anxiety [None]
  - Migraine [None]
  - Toxicity to various agents [None]
  - Suicidal ideation [None]
  - Furuncle [None]
  - Asthenia [None]
  - Weight decreased [None]
  - Back pain [None]
  - Anger [None]

NARRATIVE: CASE EVENT DATE: 20180601
